FAERS Safety Report 18867914 (Version 1)
Quarter: 2021Q1

REPORT INFORMATION
  Report Type: Spontaneous
  Country: US (occurrence: US)
  Receive Date: 20210209
  Receipt Date: 20210209
  Transmission Date: 20210420
  Serious: No
  Sender: FDA-Public Use
  Company Number: US-PFIZER INC-2021115960

PATIENT
  Age: 65 Year
  Sex: Female
  Weight: 59 kg

DRUGS (13)
  1. LETROZOLE. [Concomitant]
     Active Substance: LETROZOLE
     Dosage: UNK
  2. IBRANCE [Suspect]
     Active Substance: PALBOCICLIB
     Dosage: 125 MG, CYCLIC (125MG TABLET, COUNT DISPENSED: 21 TABLETS)
     Dates: start: 20200521
  3. IBRANCE [Suspect]
     Active Substance: PALBOCICLIB
     Dosage: 125 MG, CYCLIC (125MG TABLET, COUNT DISPENSED: 21 TABLETS)
     Dates: start: 20200521
  4. IBRANCE [Suspect]
     Active Substance: PALBOCICLIB
     Dosage: 125 MG, CYCLIC (125MG TABLET, COUNT DISPENSED: 21 TABLETS)
     Dates: start: 20200521
  5. IBRANCE [Suspect]
     Active Substance: PALBOCICLIB
     Dosage: 125 MG, CYCLIC (125MG TABLET, COUNT DISPENSED: 21 TABLETS)
     Dates: start: 20200521
  6. ARMOUR THYROID [Concomitant]
     Active Substance: THYROID, PORCINE
     Dosage: UNK
  7. IBRANCE [Suspect]
     Active Substance: PALBOCICLIB
     Dosage: 125 MG, CYCLIC (125MG TABLET, COUNT DISPENSED: 21 TABLETS)
     Dates: start: 20200521
  8. PHYTO 9 [Concomitant]
     Dosage: UNK
  9. IBRANCE [Suspect]
     Active Substance: PALBOCICLIB
     Dosage: 125 MG, CYCLIC (125MG TABLET, COUNT DISPENSED: 21 TABLETS)
     Dates: start: 20200521
  10. IBRANCE [Suspect]
     Active Substance: PALBOCICLIB
     Indication: BREAST CANCER FEMALE
     Dosage: 125 MG, CYCLIC (125MG TABLET FOR 21 DAYS THEN SEVEN DAYS OFF, COUNT DISPENSED 21 TABLETS)
     Dates: start: 20200521
  11. IBRANCE [Suspect]
     Active Substance: PALBOCICLIB
     Dosage: 125 MG, CYCLIC (125MG TABLET, COUNT DISPENSED: 21 TABLETS)
     Dates: start: 20200521
  12. LEXAPRO [Concomitant]
     Active Substance: ESCITALOPRAM OXALATE
     Dosage: UNK
  13. CALCIUM 600 + D [Concomitant]
     Active Substance: CALCIUM\VITAMIN D
     Dosage: UNK

REACTIONS (2)
  - Laboratory test abnormal [Unknown]
  - Neoplasm progression [Unknown]
